FAERS Safety Report 4471663-X (Version None)
Quarter: 2004Q4

REPORT INFORMATION
  Report Type: 
  Country: None (occurrence: None)
  Receive Date: 20041012
  Receipt Date: 20041012
  Transmission Date: 20050328
  Serious: No
  Sender: FDA-Public Use
  Company Number: None

PATIENT
  Sex: Male
  Weight: 86.1834 kg

DRUGS (2)
  1. CRESTOR [Suspect]
     Dosage: ONE TABLET PER DAY ORAL
     Route: 048
     Dates: start: 20031006, end: 20040218
  2. ASPIRIN [Concomitant]

REACTIONS (3)
  - ARTHRALGIA [None]
  - CHROMATURIA [None]
  - MYALGIA [None]
